FAERS Safety Report 14846027 (Version 1)
Quarter: 2018Q2

REPORT INFORMATION
  Report Type: Spontaneous
  Country: US (occurrence: US)
  Receive Date: 20180504
  Receipt Date: 20180504
  Transmission Date: 20180711
  Serious: Yes (Other)
  Sender: FDA-Public Use
  Company Number: US-BIOGEN-2018BI00568251

PATIENT
  Sex: Female

DRUGS (1)
  1. AVONEX [Suspect]
     Active Substance: INTERFERON BETA-1A
     Indication: MULTIPLE SCLEROSIS
     Route: 065

REACTIONS (6)
  - Breast cancer [Unknown]
  - Carpal tunnel syndrome [Unknown]
  - Diabetes mellitus [Unknown]
  - Loss of control of legs [Unknown]
  - Myasthenia gravis [Unknown]
  - Gait inability [Unknown]
